FAERS Safety Report 5771909-1 (Version None)
Quarter: 2008Q2

REPORT INFORMATION
  Report Type: 
  Country: None (occurrence: None)
  Receive Date: 20080613
  Receipt Date: 20080602
  Transmission Date: 20081010
  Serious: Yes (Hospitalization, Other)
  Sender: FDA-Public Use
  Company Number: PHHY2008FR09821

PATIENT
  Sex: Male

DRUGS (18)
  1. ESIDRIX [Suspect]
     Indication: HYPERTENSION
     Dosage: UNK
     Route: 048
     Dates: end: 20080411
  2. ESIDRIX [Suspect]
     Dosage: UNK
     Route: 048
     Dates: start: 20080420
  3. VALSARTAN [Suspect]
     Dosage: 40 MG
     Route: 048
     Dates: end: 20080411
  4. VALSARTAN [Suspect]
     Dosage: UNK
     Dates: start: 20080416
  5. PANTOPRAZOLE SODIUM [Suspect]
     Dosage: UNK
     Route: 048
     Dates: start: 20080414
  6. OMEPRAZOLE [Suspect]
     Dosage: UNK
     Route: 048
     Dates: start: 20080413, end: 20080413
  7. PROPOXYPHENE HCL AND ACETAMINOPHEN [Suspect]
     Dosage: UNK
     Route: 048
     Dates: start: 20080414
  8. PLAVIX [Suspect]
     Dosage: UNK
     Route: 048
     Dates: start: 20080417
  9. BISOPROLOL FUMARATE [Suspect]
     Dosage: UNK
     Route: 048
     Dates: start: 20080417
  10. DESLORATADINE [Suspect]
     Dosage: UNK
     Route: 048
     Dates: start: 20080419
  11. HUMALOG MIX [Concomitant]
     Indication: TYPE 2 DIABETES MELLITUS
  12. ALLOPURINOL [Concomitant]
  13. DIFFU K [Concomitant]
  14. AMLOR [Concomitant]
  15. LASILIX [Concomitant]
  16. RANITIDINE [Concomitant]
     Dosage: UNK
     Dates: end: 20080413
  17. DOLIPRANE [Concomitant]
     Dosage: UNK
     Dates: end: 20080413
  18. LACTULOSE [Concomitant]
     Dosage: UNK
     Dates: end: 20080413

REACTIONS (11)
  - ANAEMIA [None]
  - DYSPNOEA [None]
  - ERYSIPELAS [None]
  - HYPOTHYROIDISM [None]
  - IRON DEFICIENCY [None]
  - LEUKOPENIA [None]
  - LYMPHOCYTE COUNT DECREASED [None]
  - NEUTROPENIA [None]
  - PULMONARY HYPERTENSION [None]
  - RENAL FAILURE CHRONIC [None]
  - THROMBOCYTOPENIA [None]
